FAERS Safety Report 20849674 (Version 1)
Quarter: 2022Q2

REPORT INFORMATION
  Report Type: Report from Study
  Country: JP (occurrence: JP)
  Receive Date: 20220519
  Receipt Date: 20220519
  Transmission Date: 20220721
  Serious: Yes (Life-Threatening, Hospitalization, Other)
  Sender: FDA-Public Use
  Company Number: JP-ELI_LILLY_AND_COMPANY-JP202205006586AA

PATIENT
  Age: 49 Year
  Sex: Female
  Weight: 69 kg

DRUGS (4)
  1. RETEVMO [Suspect]
     Active Substance: SELPERCATINIB
     Indication: Non-small cell lung cancer
     Dosage: 40 MG, BID
     Route: 048
     Dates: start: 20211221, end: 20220106
  2. RETEVMO [Suspect]
     Active Substance: SELPERCATINIB
     Dosage: 80 MG, BID
     Route: 048
     Dates: start: 20220107, end: 20220204
  3. GLYCERIN [Concomitant]
     Active Substance: GLYCERIN
     Indication: Brain neoplasm
  4. GASTER [CROMOGLICATE SODIUM] [Concomitant]

REACTIONS (2)
  - Platelet count decreased [Not Recovered/Not Resolved]
  - Hepatic function abnormal [Not Recovered/Not Resolved]

NARRATIVE: CASE EVENT DATE: 20211223
